FAERS Safety Report 16948403 (Version 1)
Quarter: 2019Q4

REPORT INFORMATION
  Report Type: Report from Study
  Country: None (occurrence: AR)
  Receive Date: 20191022
  Receipt Date: 20191022
  Transmission Date: 20200122
  Serious: Yes (Hospitalization)
  Sender: FDA-Public Use
  Company Number: AR-ABBVIE-19K-007-2969966-00

PATIENT
  Sex: Female

DRUGS (1)
  1. HUMIRA [Suspect]
     Active Substance: ADALIMUMAB
     Indication: RHEUMATOID ARTHRITIS
     Route: 058
     Dates: start: 20161207

REACTIONS (10)
  - Oxygen saturation decreased [Unknown]
  - Vein disorder [Unknown]
  - Osteoporosis [Unknown]
  - Urinary tract infection [Recovered/Resolved]
  - Arterial disorder [Unknown]
  - Headache [Unknown]
  - Dehydration [Unknown]
  - Red blood cell count decreased [Unknown]
  - Rheumatoid arthritis [Recovering/Resolving]
  - White blood cell count abnormal [Unknown]

NARRATIVE: CASE EVENT DATE: 20190916
